FAERS Safety Report 15576406 (Version 1)
Quarter: 2018Q4

REPORT INFORMATION
  Report Type: Spontaneous
  Country: US (occurrence: US)
  Receive Date: 20181101
  Receipt Date: 20181101
  Transmission Date: 20190205
  Serious: No
  Sender: FDA-Public Use
  Company Number: US-PFIZER INC-2018444613

PATIENT
  Age: 53 Year
  Sex: Male
  Weight: 69.16 kg

DRUGS (3)
  1. DILANTIN [Suspect]
     Active Substance: PHENYTOIN
     Indication: SEIZURE
     Dosage: 300 MG, 1X/DAY (100 MG CAPSULES THREE AT BEDTIME) (AT NIGHT AT BEDTIME)
  2. DILANTIN [Suspect]
     Active Substance: PHENYTOIN
     Dosage: 4 DF, 1X/DAY (4 CAPSULE)
  3. DILANTIN [Suspect]
     Active Substance: PHENYTOIN
     Dosage: 6 DF, 1X/ (6 CAPSULES)

REACTIONS (1)
  - Anticonvulsant drug level decreased [Unknown]
